FAERS Safety Report 8543950-7 (Version None)
Quarter: 2012Q3

REPORT INFORMATION
  Report Type: 
  Country: None (occurrence: None)
  Receive Date: 20120727
  Receipt Date: 20120713
  Transmission Date: 20120928
  Serious: Yes (Hospitalization, Other)
  Sender: FDA-Public Use
  Company Number: FR-CELGENEUS-056-21880-12042569

PATIENT
  Sex: Male
  Weight: 57 kg

DRUGS (5)
  1. EPO [Concomitant]
     Route: 065
  2. PERINDOPRIL ERBUMINE [Concomitant]
     Dosage: 2 MILLIGRAM
     Route: 065
     Dates: start: 20070101
  3. REVLIMID [Suspect]
     Indication: MULTIPLE MYELOMA
     Route: 048
     Dates: start: 20110128, end: 20120322
  4. DEXAMETHASONE [Concomitant]
     Route: 065
     Dates: start: 20110128, end: 20120322
  5. BINOCRIT [Concomitant]
     Dosage: 2857.1429 MILLIGRAM
     Route: 065
     Dates: start: 20120224, end: 20120322

REACTIONS (1)
  - ACUTE MYELOID LEUKAEMIA [None]
